FAERS Safety Report 6694332-4 (Version None)
Quarter: 2010Q2

REPORT INFORMATION
  Report Type: 
  Country: None (occurrence: None)
  Receive Date: 20100423
  Receipt Date: 20100414
  Transmission Date: 20101027
  Serious: Yes (Other)
  Sender: FDA-Public Use
  Company Number: CA-PFIZER INC-2010047731

PATIENT
  Age: 39 Year
  Sex: Male

DRUGS (2)
  1. LIPITOR [Suspect]
     Indication: BLOOD CHOLESTEROL INCREASED
     Dosage: UNK
     Route: 048
     Dates: start: 20090101, end: 20090101
  2. SYMBICORT [Concomitant]
     Dosage: UNK
     Dates: start: 20070101, end: 20100301

REACTIONS (2)
  - ARTHRALGIA [None]
  - PARAESTHESIA [None]
